FAERS Safety Report 21662526 (Version 1)
Quarter: 2022Q4

REPORT INFORMATION
  Report Type: Spontaneous
  Country: US (occurrence: None)
  Receive Date: 20221130
  Receipt Date: 20221130
  Transmission Date: 20230112
  Serious: No
  Sender: FDA-Public Use
  Company Number: US-ALVOGEN-2022-ALVOGEN-119534

PATIENT

DRUGS (1)
  1. LEVOTHYROXINE [Suspect]
     Active Substance: LEVOTHYROXINE
     Indication: Product used for unknown indication

REACTIONS (10)
  - Erythema [Unknown]
  - Skin exfoliation [Unknown]
  - Cold sweat [Unknown]
  - Skin irritation [Unknown]
  - Headache [Unknown]
  - Alopecia [Unknown]
  - Feeling abnormal [Unknown]
  - Dry mouth [Unknown]
  - Eye irritation [Unknown]
  - Hyperhidrosis [Unknown]
